FAERS Safety Report 25014780 (Version 4)
Quarter: 2025Q3

REPORT INFORMATION
  Report Type: Report from Study
  Country: US (occurrence: US)
  Receive Date: 20250226
  Receipt Date: 20250917
  Transmission Date: 20251021
  Serious: Yes (Other)
  Sender: TAKEDA
  Company Number: US-TAKEDA-2025TUS014579

PATIENT
  Sex: Female
  Weight: 90 kg

DRUGS (18)
  1. TEDUGLUTIDE [Suspect]
     Active Substance: TEDUGLUTIDE
     Indication: Short-bowel syndrome
     Dosage: 4.6 MILLIGRAM, QD
     Dates: start: 20250208
  2. TEDUGLUTIDE [Suspect]
     Active Substance: TEDUGLUTIDE
     Indication: Magnesium deficiency
     Dosage: 4.6 MILLIGRAM, QD
  3. TEDUGLUTIDE [Suspect]
     Active Substance: TEDUGLUTIDE
     Indication: Crohn^s disease
     Dosage: 4.6 MILLIGRAM, QD
     Dates: start: 202501
  4. TEDUGLUTIDE [Suspect]
     Active Substance: TEDUGLUTIDE
     Dosage: 4.6 MILLIGRAM, QD
  5. PREDNISONE [Suspect]
     Active Substance: PREDNISONE
     Indication: Product used for unknown indication
  6. MAGNESIUM CHLORIDE [Concomitant]
     Active Substance: MAGNESIUM CHLORIDE
  7. NEXIUM [Concomitant]
     Active Substance: ESOMEPRAZOLE MAGNESIUM
  8. COLCHICINE [Concomitant]
     Active Substance: COLCHICINE
  9. ACETAMINOPHEN\HYDROCODONE [Concomitant]
     Active Substance: ACETAMINOPHEN\HYDROCODONE
  10. LOPERAMIDE [Concomitant]
     Active Substance: LOPERAMIDE
  11. SOTALOL [Concomitant]
     Active Substance: SOTALOL
  12. GABAPENTIN [Concomitant]
     Active Substance: GABAPENTIN
  13. ELIQUIS [Concomitant]
     Active Substance: APIXABAN
  14. LOMOTIL [Concomitant]
     Active Substance: ATROPINE SULFATE\DIPHENOXYLATE HYDROCHLORIDE
  15. METFORMIN HYDROCHLORIDE [Concomitant]
     Active Substance: METFORMIN HYDROCHLORIDE
  16. ALLOPURINOL [Concomitant]
     Active Substance: ALLOPURINOL
  17. VITAMIN D [Concomitant]
     Active Substance: VITAMIN D NOS
     Indication: Crohn^s disease
  18. MAGNESIUM [Concomitant]
     Active Substance: MAGNESIUM

REACTIONS (12)
  - Crohn^s disease [Unknown]
  - Illness [Unknown]
  - Diarrhoea [Recovering/Resolving]
  - Overweight [Unknown]
  - Blood glucose increased [Unknown]
  - Night sweats [Not Recovered/Not Resolved]
  - Body temperature decreased [Not Recovered/Not Resolved]
  - Oropharyngeal pain [Unknown]
  - Infection [Unknown]
  - Nausea [Unknown]
  - Abdominal distension [Unknown]
  - Abdominal pain [Recovering/Resolving]
